FAERS Safety Report 12975889 (Version 3)
Quarter: 2017Q1

REPORT INFORMATION
  Report Type: Report from Study
  Country: CA (occurrence: CA)
  Receive Date: 20161125
  Receipt Date: 20170116
  Transmission Date: 20170428
  Serious: Yes (Hospitalization)
  Sender: FDA-Public Use
  Company Number: CA-B.I. PHARMACEUTICALS,INC./RIDGEFIELD-2016-BI-44355CN

PATIENT
  Age: 69 Year
  Sex: Male

DRUGS (4)
  1. OFEV [Suspect]
     Active Substance: NINTEDANIB
     Route: 048
     Dates: start: 20161118
  2. OFEV [Suspect]
     Active Substance: NINTEDANIB
     Indication: IDIOPATHIC PULMONARY FIBROSIS
     Route: 048
     Dates: start: 20160630
  3. OFEV [Suspect]
     Active Substance: NINTEDANIB
     Route: 065
     Dates: start: 20161001
  4. OFEV [Suspect]
     Active Substance: NINTEDANIB
     Route: 048

REACTIONS (24)
  - Urinary tract infection [Recovered/Resolved]
  - Blood urea increased [Recovered/Resolved]
  - Blood potassium decreased [Recovered/Resolved]
  - Weight decreased [Recovered/Resolved]
  - Abdominal pain [Not Recovered/Not Resolved]
  - Blood potassium increased [Recovered/Resolved]
  - Productive cough [Not Recovered/Not Resolved]
  - Constipation [Recovered/Resolved]
  - Acne [Not Recovered/Not Resolved]
  - Rash [Unknown]
  - Diarrhoea [Recovered/Resolved]
  - Cough decreased [Not Recovered/Not Resolved]
  - Bloody discharge [Not Recovered/Not Resolved]
  - Dysphonia [Not Recovered/Not Resolved]
  - Faeces soft [Not Recovered/Not Resolved]
  - Weight decreased [Not Recovered/Not Resolved]
  - Diarrhoea [Recovered/Resolved]
  - Flatulence [Not Recovered/Not Resolved]
  - Cough [Not Recovered/Not Resolved]
  - Increased appetite [Not Recovered/Not Resolved]
  - Diarrhoea [Not Recovered/Not Resolved]
  - Dry skin [Not Recovered/Not Resolved]
  - Muscle spasms [Not Recovered/Not Resolved]
  - Weight decreased [Unknown]

NARRATIVE: CASE EVENT DATE: 20160702
